FAERS Safety Report 10057843 (Version 1)
Quarter: 2014Q2

REPORT INFORMATION
  Report Type: Spontaneous
  Country: GB (occurrence: None)
  Receive Date: 20140402
  Receipt Date: 20140402
  Transmission Date: 20141212
  Serious: Yes (Disabling)
  Sender: FDA-Public Use
  Company Number: AUR-APL-2014-03988

PATIENT
  Age: 73 Year
  Sex: Female
  Weight: 80.4 kg

DRUGS (12)
  1. SIMVASTATIN [Suspect]
     Indication: PRODUCT USED FOR UNKNOWN INDICATION
     Dates: start: 20140312
  2. ADCAL (CARBAZOCHORME) [Concomitant]
  3. AMLODIPINE (AMLODIPINE) [Concomitant]
  4. AMOXICILLIN (AMOXICILLIN) [Concomitant]
  5. BENDROFLUMETHIAZIDE (BENDROFLUMETHIAZIDE) [Concomitant]
  6. BISOPROLOL (BISOPROLOL) [Concomitant]
  7. CLOPIDOGREL (CLOPIDOGREL) [Concomitant]
  8. ETORICOXIB (ETROICOXIB) [Concomitant]
  9. FERROUS SULFATE (FERROUS SULFATE) [Concomitant]
  10. LANSOPRAZOLE (LANSOPRAZOLE) [Concomitant]
  11. NITROFURANTOIN (NITROFIRANTOIN) [Concomitant]
  12. TRIMETHOPRIM (TRIMETHOPRIM) [Concomitant]

REACTIONS (1)
  - Pain [None]
